FAERS Safety Report 15747250 (Version 1)
Quarter: 2018Q4

REPORT INFORMATION
  Report Type: Spontaneous
  Country: US (occurrence: US)
  Receive Date: 20181220
  Receipt Date: 20181220
  Transmission Date: 20190205
  Serious: No
  Sender: FDA-Public Use
  Company Number: US-AVADEL SPECIALTY PHARMACEUTICALS, LLC-2018AVA00377

PATIENT
  Age: 63 Year
  Sex: Male

DRUGS (4)
  1. FIBER TABLETS [Concomitant]
  2. COQ10 [Concomitant]
     Active Substance: UBIDECARENONE
  3. COENZYME [Concomitant]
     Active Substance: UBIDECARENONE
  4. NOCTIVA [Suspect]
     Active Substance: DESMOPRESSIN ACETATE
     Dosage: 1.66 ?G, 1X/DAY 30 MINUTES BEFORE BED
     Route: 045
     Dates: start: 20180831, end: 20180831

REACTIONS (7)
  - Ear pain [Recovered/Resolved]
  - Oropharyngeal pain [Recovered/Resolved]
  - Sinus pain [Recovered/Resolved]
  - Drug ineffective [Recovered/Resolved]
  - Nasopharyngitis [Recovered/Resolved]
  - Influenza like illness [Recovered/Resolved]
  - Sneezing [Recovered/Resolved]

NARRATIVE: CASE EVENT DATE: 20180831
